FAERS Safety Report 6201201-2 (Version None)
Quarter: 2009Q2

REPORT INFORMATION
  Report Type: 
  Country: None (occurrence: None)
  Receive Date: 20090526
  Receipt Date: 20090522
  Transmission Date: 20091009
  Serious: Yes (Death, Hospitalization)
  Sender: FDA-Public Use
  Company Number: DE-JNJFOC-20090501630

PATIENT
  Sex: Male
  Weight: 120 kg

DRUGS (3)
  1. RISPERDAL CONSTA [Suspect]
     Indication: SCHIZOAFFECTIVE DISORDER
     Route: 030
  2. LITHIUM CARBONATE [Concomitant]
     Route: 065
  3. VALPROATE SODIUM [Concomitant]
     Route: 065

REACTIONS (3)
  - COMPLETED SUICIDE [None]
  - HOSPITALISATION [None]
  - INAPPROPRIATE SCHEDULE OF DRUG ADMINISTRATION [None]
